FAERS Safety Report 8171114 (Version 7)
Quarter: 2013Q2

REPORT INFORMATION
  Report Type: Report from Study
  Country: IL (occurrence: IL)
  Receive Date: 20111006
  Receipt Date: 20130614
  Transmission Date: 20140414
  Serious: Yes (Life-Threatening, Hospitalization)
  Sender: FDA-Public Use
  Company Number: IL-ROCHE-798011

PATIENT
  Age: 43 Year
  Sex: Male
  Weight: 93 kg

DRUGS (7)
  1. VEMURAFENIB [Suspect]
     Indication: METASTATIC MALIGNANT MELANOMA
     Dosage: DOSE REDUCED
     Route: 048
     Dates: start: 20110721, end: 20110818
  2. VEMURAFENIB [Suspect]
     Route: 048
  3. PRAVASTATIN SODIUM [Concomitant]
     Route: 065
     Dates: start: 20090701
  4. CLOZAPINE [Concomitant]
  5. CLONAZEPAM [Concomitant]
  6. TOPISALEN OINTMENT [Concomitant]
     Route: 065
     Dates: start: 20110711
  7. CALCIPOTRIENE OINTMENT [Concomitant]
     Route: 065
     Dates: start: 20110711

REACTIONS (1)
  - Hyperuricaemia [Recovered/Resolved]
